FAERS Safety Report 4598909-1 (Version None)
Quarter: 2005Q1

REPORT INFORMATION
  Report Type: 
  Country: None (occurrence: None)
  Receive Date: 20050304
  Receipt Date: 20050225
  Transmission Date: 20050727
  Serious: Yes (Hospitalization, Other)
  Sender: FDA-Public Use
  Company Number: DK-ABBOTT-05P-044-0292172-00

PATIENT
  Age: 17 Year
  Sex: Male
  Weight: 115 kg

DRUGS (7)
  1. SEVORANE LIQUID FOR INHALATION [Suspect]
     Indication: ANAESTHESIA
     Dosage: NOT REPORTED, NOT REPORTED
     Route: 055
     Dates: start: 20050201, end: 20050201
  2. THIOMEBUMOL-NATRIUM [Concomitant]
     Indication: DRUG USE FOR UNKNOWN INDICATION
     Dosage: NOT REPORTED, NOT REPORTED, NOT REPORTED
     Dates: start: 20050201, end: 20050201
  3. SUCCINYLCHOLINE CHLORIDE [Concomitant]
     Indication: DRUG USE FOR UNKNOWN INDICATION
     Dosage: NOT REPORTED, NOT REPORTED, NOT REPORTED
     Dates: start: 20050201, end: 20050201
  4. FENTANYL [Concomitant]
     Indication: DRUG USE FOR UNKNOWN INDICATION
     Dosage: NOT REPORTED, NOT REPORTED, NOT REPORTED
     Dates: start: 20050201, end: 20050201
  5. ROCURONIUM BROMIDE [Concomitant]
     Indication: DRUG USE FOR UNKNOWN INDICATION
     Dosage: NOT REPORTED, NOT REPORTED, NOT REPORTED
     Dates: start: 20050201, end: 20050201
  6. METRONIDAZOLE [Concomitant]
     Indication: DRUG USE FOR UNKNOWN INDICATION
     Dosage: NOT REPORTED, NOT REPORTED, NOT REPORTED
     Dates: start: 20050201, end: 20050201
  7. CEFUROXIME [Concomitant]
     Indication: DRUG USE FOR UNKNOWN INDICATION
     Dosage: NOT REPORTED, NOT REPORTED, NOT REPORTED
     Dates: start: 20050201, end: 20050201

REACTIONS (3)
  - ACUTE RESPIRATORY DISTRESS SYNDROME [None]
  - AGITATION [None]
  - SNORING [None]
